FAERS Safety Report 18894882 (Version 1)
Quarter: 2021Q1

REPORT INFORMATION
  Report Type: Report from Study
  Country: GB (occurrence: GB)
  Receive Date: 20210215
  Receipt Date: 20210215
  Transmission Date: 20210420
  Serious: Yes (Hospitalization)
  Sender: FDA-Public Use
  Company Number: GB-MYLANLABS-2021M1008493

PATIENT
  Age: 39 Year
  Sex: Female

DRUGS (3)
  1. IMRALDI [Suspect]
     Active Substance: ADALIMUMAB
     Indication: PSORIATIC ARTHROPATHY
     Dosage: 40 MILLIGRAM, BIWEEKLY
     Route: 058
     Dates: start: 20200127
  2. TRAMADOL. [Suspect]
     Active Substance: TRAMADOL
     Indication: PAIN
     Dosage: UNKNOWN
     Route: 065
  3. IMRALDI [Suspect]
     Active Substance: ADALIMUMAB
     Dosage: 40 MILLIGRAM EVERY 10 DAYS
     Route: 058

REACTIONS (21)
  - Weight decreased [Unknown]
  - Therapeutic response shortened [Unknown]
  - Psoriatic arthropathy [Unknown]
  - Apathy [Unknown]
  - Off label use [Unknown]
  - Pneumonitis [Unknown]
  - Hallucination [Unknown]
  - Burning sensation [Unknown]
  - Ill-defined disorder [Unknown]
  - Haematuria [Unknown]
  - Alopecia [Unknown]
  - Vasculitis [Unknown]
  - Depressed mood [Unknown]
  - Poor quality sleep [Unknown]
  - Decreased appetite [Unknown]
  - Chest pain [Unknown]
  - Sleep disorder [Unknown]
  - Body temperature increased [Unknown]
  - Fatigue [Unknown]
  - Therapeutic product effect decreased [Unknown]
  - Asthenia [Unknown]
